FAERS Safety Report 8621679-4 (Version None)
Quarter: 2012Q3

REPORT INFORMATION
  Report Type: 
  Country: None (occurrence: None)
  Receive Date: 20120825
  Receipt Date: 20120815
  Transmission Date: 20120928
  Serious: Yes (Other)
  Sender: FDA-Public Use
  Company Number: NL-ACCORD-014462

PATIENT
  Age: 56 Year
  Sex: Female

DRUGS (15)
  1. OXYBUTYNINE HCL [Concomitant]
     Dosage: 0.1 MG/ML, 3 TIMES PER 1 DAYS 1 DF
  2. DIAZEPAM SANDOZ [Concomitant]
     Dosage: 1 TIMES PER 1 DAYS 10 MG
  3. OXYBUTYNINE HCL [Concomitant]
     Dosage: 3 TIMES PER 1 DAYS 1 DF
  4. TOPAMAX SPRINKLE [Concomitant]
     Dosage: 1 TIMES PER 1 DAYS 25 MG
     Dates: start: 20120625
  5. METOPROLOLSUCCINAAT SANDOZ [Concomitant]
     Dosage: 1 TIMES PER 1 DAYS 200 MG
  6. TRAMADOL HCL [Concomitant]
     Dosage: 3 TIMES PER 1 DAYS 50 MG
  7. HYDROCHLOORTHIAZIDE SANDOZ [Concomitant]
     Dosage: 1 TIMES PER 1 DAYS 25 MG, IN THE MORNING
  8. DICLOFENAC SODIUM [Concomitant]
     Dosage: 1 TIMES PER 1 DAYS 100 MG
  9. LAXTRA ORANGE [Concomitant]
     Dosage: 1 TIMES PER 1 DAYS 1 DF
  10. IRBESARTAN [Concomitant]
     Dosage: 1 TIMES PER 1 DAYS 150 MG
  11. OXAZEPAM SANDOZ [Concomitant]
     Dosage: TIMES PER NECESSARY 10 MG
  12. IRRISOL CHLOORHEX [Concomitant]
     Dosage: 0.2 MG/ML, TIMES PER 1 DF
  13. QUETIAPINE FUMARATE [Suspect]
     Indication: PANIC ATTACK
     Dosage: 1 TIMES PER 1 DAYS 300 MG
  14. FLUNITRAZEPAM [Concomitant]
     Dosage: 1 TIMES PER 1 DAYS 1 DF
  15. TEMAZEPAM [Concomitant]
     Dosage: 1 TIMES PER 1 DAYS 10 MG

REACTIONS (3)
  - PAIN IN EXTREMITY [None]
  - OFF LABEL USE [None]
  - RESTLESS LEGS SYNDROME [None]
